FAERS Safety Report 20313340 (Version 1)
Quarter: 2022Q1

REPORT INFORMATION
  Report Type: Spontaneous
  Country: US (occurrence: US)
  Receive Date: 20220109
  Receipt Date: 20220109
  Transmission Date: 20220424
  Serious: No
  Sender: FDA-Public Use
  Company Number: US-SA-SAC20211230001479

PATIENT
  Age: 73 Year
  Sex: Female

DRUGS (6)
  1. AUBAGIO [Suspect]
     Active Substance: TERIFLUNOMIDE
     Indication: Multiple sclerosis
     Route: 048
  2. AMANTADINE [Concomitant]
     Active Substance: AMANTADINE
  3. BACLOFEN [Concomitant]
     Active Substance: BACLOFEN
  4. IRBESARTAN [Concomitant]
     Active Substance: IRBESARTAN
  5. PRAVASTATIN [Concomitant]
     Active Substance: PRAVASTATIN
     Dosage: 100MG
     Route: 048
  6. SERTRALINE [Concomitant]
     Active Substance: SERTRALINE HYDROCHLORIDE

REACTIONS (1)
  - Contusion [Recovered/Resolved]
